FAERS Safety Report 7153940-7 (Version None)
Quarter: 2010Q4

REPORT INFORMATION
  Report Type: 
  Country: None (occurrence: None)
  Receive Date: 20101213
  Receipt Date: 20101210
  Transmission Date: 20110411
  Serious: Yes (Death, Hospitalization, Other)
  Sender: FDA-Public Use
  Company Number: US-B.I. PHARMACEUTICALS,INC./RIDGEFIELD-2010-BP-13982BP

PATIENT
  Age: 71 Year
  Sex: Male

DRUGS (1)
  1. FLOMAX [Suspect]
     Indication: PROSTATOMEGALY
     Dosage: 0.4 MG
     Route: 048
     Dates: start: 20080101

REACTIONS (4)
  - LUNG NEOPLASM MALIGNANT [None]
  - PANCREATIC CARCINOMA [None]
  - PNEUMONIA [None]
  - PYREXIA [None]
